FAERS Safety Report 16281261 (Version 1)
Quarter: 2019Q2

REPORT INFORMATION
  Report Type: Spontaneous
  Country: CR (occurrence: CR)
  Receive Date: 20190507
  Receipt Date: 20190507
  Transmission Date: 20190711
  Serious: Yes (Other)
  Sender: FDA-Public Use
  Company Number: CR-PFIZER INC-2019194141

PATIENT
  Age: 94 Year
  Sex: Female

DRUGS (11)
  1. AMIODARONE [Concomitant]
     Active Substance: AMIODARONE
  2. LYRICA [Suspect]
     Active Substance: PREGABALIN
     Dosage: 50 MG, 1X/DAY
     Dates: end: 20190429
  3. ASPIRINA [Concomitant]
     Active Substance: ASPIRIN
  4. LYRICA [Suspect]
     Active Substance: PREGABALIN
     Indication: POST HERPETIC NEURALGIA
     Dosage: 25 MG, DAILY
  5. ALDACTONE [Concomitant]
     Active Substance: SPIRONOLACTONE
  6. EXPANSIA [Concomitant]
  7. INTRAFER [DEXTRIFERRON] [Concomitant]
  8. PROTON [OMEPRAZOLE] [Concomitant]
  9. JANUVIA [Concomitant]
     Active Substance: SITAGLIPTIN PHOSPHATE
     Dosage: UNK
     Dates: end: 20190429
  10. ZOPICLONE [Concomitant]
     Active Substance: ZOPICLONE
  11. QUETIAZIC [Concomitant]

REACTIONS (2)
  - Delirium [Not Recovered/Not Resolved]
  - Speech disorder [Not Recovered/Not Resolved]
